FAERS Safety Report 9936381 (Version 1)
Quarter: 2014Q1

REPORT INFORMATION
  Report Type: Spontaneous
  Country: US (occurrence: US)
  Receive Date: 20140228
  Receipt Date: 20140228
  Transmission Date: 20141002
  Serious: No
  Sender: FDA-Public Use
  Company Number: US-AMGEN-USASP2014004268

PATIENT
  Age: 51 Year
  Sex: Male
  Weight: 72.56 kg

DRUGS (1)
  1. ENBREL [Suspect]
     Indication: ANKYLOSING SPONDYLITIS
     Dosage: 25 MG, 2 TIMES/WK
     Route: 058

REACTIONS (4)
  - Arthritis [Unknown]
  - Gait disturbance [Unknown]
  - Arthropathy [Unknown]
  - Arthralgia [Unknown]
